FAERS Safety Report 5572826-2 (Version None)
Quarter: 2007Q4

REPORT INFORMATION
  Report Type: 
  Country: None (occurrence: None)
  Receive Date: 20071223
  Receipt Date: 20071217
  Transmission Date: 20080405
  Serious: Yes (Other)
  Sender: FDA-Public Use
  Company Number: PHEH2007US15879

PATIENT
  Sex: Male

DRUGS (2)
  1. FUROSEMIDE [Suspect]
  2. HYDROCHLOROTHIAZIDE [Suspect]
     Indication: HYPERTENSION

REACTIONS (1)
  - DIABETES MELLITUS [None]
